FAERS Safety Report 7445270-0 (Version None)
Quarter: 2011Q2

REPORT INFORMATION
  Report Type: 
  Country: None (occurrence: None)
  Receive Date: 20110420
  Receipt Date: 20110411
  Transmission Date: 20111010
  Serious: Yes (Death)
  Sender: FDA-Public Use
  Company Number: 20109651

PATIENT
  Age: 72 Year
  Sex: Male
  Weight: 49 kg

DRUGS (5)
  1. MAGNESIUM OXIDE [Concomitant]
  2. BACLOFEN [Suspect]
     Indication: MUSCLE SPASTICITY
     Dosage: 400 MCG, DAILY, INTRATHECAL
     Route: 037
  3. GABALON [Concomitant]
  4. TANATRIL [Concomitant]
  5. TAMSULOSIN HYDROCHLORIDE [Concomitant]

REACTIONS (2)
  - PULMONARY OEDEMA [None]
  - PNEUMONIA ASPIRATION [None]
